FAERS Safety Report 9239737 (Version 3)
Quarter: 2013Q2

REPORT INFORMATION
  Report Type: Spontaneous
  Country: US (occurrence: US)
  Receive Date: 20130418
  Receipt Date: 20130527
  Transmission Date: 20140414
  Serious: No
  Sender: FDA-Public Use
  Company Number: US-PFIZER INC-2013117921

PATIENT
  Age: 60 Year
  Sex: Female
  Weight: 78.46 kg

DRUGS (1)
  1. ADVIL [Suspect]
     Dosage: UNK
     Dates: end: 20130413

REACTIONS (4)
  - Rash erythematous [Unknown]
  - Pruritus [Unknown]
  - Fatigue [Unknown]
  - Drug hypersensitivity [Unknown]
